FAERS Safety Report 7896502-6 (Version None)
Quarter: 2011Q4

REPORT INFORMATION
  Report Type: 
  Country: None (occurrence: None)
  Receive Date: 20111106
  Receipt Date: 20110909
  Transmission Date: 20120403
  Serious: No
  Sender: FDA-Public Use
  Company Number: US-AMGEN-USASP2011046311

PATIENT
  Age: 55 Year
  Sex: Female
  Weight: 64.399 kg

DRUGS (4)
  1. SYNTHROID [Concomitant]
     Dosage: 88 MUG, UNK
  2. ENBREL [Suspect]
     Indication: PRODUCT USED FOR UNKNOWN INDICATION
     Dosage: 50 MG, QWK
     Route: 058
  3. PREVACID [Concomitant]
     Dosage: 30 MG, UNK
  4. CALCIUM 600 + D [Concomitant]
     Dosage: UNK

REACTIONS (2)
  - NAUSEA [None]
  - DIZZINESS [None]
